FAERS Safety Report 7335719-6 (Version None)
Quarter: 2011Q1

REPORT INFORMATION
  Report Type: 
  Country: None (occurrence: None)
  Receive Date: 20110307
  Receipt Date: 20110208
  Transmission Date: 20110831
  Serious: Yes (Other)
  Sender: FDA-Public Use
  Company Number: B0699527A

PATIENT
  Sex: Male

DRUGS (6)
  1. RELENZA [Suspect]
     Indication: INFLUENZA
     Dosage: 10MG PER DAY
     Route: 055
     Dates: start: 20110208, end: 20110208
  2. TRANSAMIN [Concomitant]
     Route: 048
  3. MUCOSTA [Concomitant]
     Route: 048
  4. FLOMAX [Concomitant]
     Route: 048
  5. ASVERIN [Concomitant]
     Route: 048
  6. CALONAL [Concomitant]
     Route: 048

REACTIONS (6)
  - HALLUCINATION, VISUAL [None]
  - ABNORMAL BEHAVIOUR [None]
  - DIZZINESS [None]
  - PHOTOPSIA [None]
  - VOMITING [None]
  - NAUSEA [None]
